FAERS Safety Report 8165417-0 (Version None)
Quarter: 2012Q1

REPORT INFORMATION
  Report Type: 
  Country: None (occurrence: None)
  Receive Date: 20120227
  Receipt Date: 20120217
  Transmission Date: 20120608
  Serious: Yes (Hospitalization)
  Sender: FDA-Public Use
  Company Number: US-BAYER-2012-017008

PATIENT
  Age: 30 Year
  Sex: Female
  Weight: 77.098 kg

DRUGS (4)
  1. EXCEDRIN (MIGRAINE) [Concomitant]
     Indication: MIGRAINE
     Dosage: UNK UNK, PRN
     Route: 048
  2. YAZ [Suspect]
     Indication: CONTRACEPTION
     Dosage: UNK
     Route: 048
     Dates: start: 20081230, end: 20090128
  3. ORTHO TRI-CYCLEN [Concomitant]
     Indication: CONTRACEPTION
     Dosage: UNK UNK, PRN
  4. YAZ [Suspect]
     Dosage: UNK
     Route: 048
     Dates: start: 20090309, end: 20090514

REACTIONS (1)
  - PULMONARY EMBOLISM [None]
